FAERS Safety Report 7138683-8 (Version None)
Quarter: 2010Q4

REPORT INFORMATION
  Report Type: 
  Country: None (occurrence: None)
  Receive Date: 20101206
  Receipt Date: 20101122
  Transmission Date: 20110411
  Serious: No
  Sender: FDA-Public Use
  Company Number: US-B.I. PHARMACEUTICALS,INC./RIDGEFIELD-2010-BP-13193BP

PATIENT
  Sex: Female

DRUGS (7)
  1. ZANTAC 75 [Suspect]
     Indication: GASTRITIS
     Dosage: 75 MG
     Route: 048
     Dates: start: 20101122
  2. VOLTAREN [Concomitant]
     Indication: NEUROPATHY PERIPHERAL
     Route: 061
  3. TRICOR [Concomitant]
     Indication: BLOOD CHOLESTEROL INCREASED
     Route: 048
  4. CRESTOR [Concomitant]
     Indication: BLOOD CHOLESTEROL INCREASED
     Route: 048
  5. HYDROCHLOROTHIAZIDE [Concomitant]
     Indication: HYPERTENSION
     Route: 048
  6. NORVASC [Concomitant]
     Indication: HYPERTENSION
     Route: 048
  7. TOPROL ER [Concomitant]
     Indication: HYPERTENSION
     Route: 048

REACTIONS (3)
  - GASTRIC DISORDER [None]
  - HYPERHIDROSIS [None]
  - NAUSEA [None]
